FAERS Safety Report 19147810 (Version 2)
Quarter: 2021Q2

REPORT INFORMATION
  Report Type: Spontaneous
  Country: JP (occurrence: JP)
  Receive Date: 20210416
  Receipt Date: 20210621
  Transmission Date: 20210717
  Serious: Yes (Death, Other)
  Sender: FDA-Public Use
  Company Number: JP-BAYER-2021-121457

PATIENT
  Age: 80 Year
  Sex: Male
  Weight: 93.4 kg

DRUGS (5)
  1. XOFIGO [Suspect]
     Active Substance: RADIUM RA-223 DICHLORIDE
     Indication: METASTASES TO BONE
     Dosage: 55KBQ/KG ONCE
     Route: 042
     Dates: start: 20170306, end: 20170306
  2. XOFIGO [Suspect]
     Active Substance: RADIUM RA-223 DICHLORIDE
     Indication: HORMONE-REFRACTORY PROSTATE CANCER
     Dosage: 55KBQ/KG ONCE
     Route: 042
     Dates: start: 20170209, end: 20170209
  3. XOFIGO [Suspect]
     Active Substance: RADIUM RA-223 DICHLORIDE
     Indication: METASTASES TO BONE
     Dosage: 55KBQ/KG ONCE
     Route: 042
     Dates: start: 20170418, end: 20170418
  4. XOFIGO [Suspect]
     Active Substance: RADIUM RA-223 DICHLORIDE
     Indication: METASTASES TO BONE
     Dosage: 55KBQ/KG ONCE
     Route: 042
     Dates: start: 20170112, end: 20170112
  5. XOFIGO [Suspect]
     Active Substance: RADIUM RA-223 DICHLORIDE
     Indication: METASTASES TO BONE
     Dosage: 55KBQ/KG ONCE
     Route: 042
     Dates: start: 20170516, end: 20170516

REACTIONS (6)
  - Hormone-refractory prostate cancer [Fatal]
  - Metastases to spine [None]
  - Pain [None]
  - Tumour compression [None]
  - Red blood cell count decreased [Recovered/Resolved]
  - Mobility decreased [None]

NARRATIVE: CASE EVENT DATE: 20170516
